FAERS Safety Report 14237744 (Version 4)
Quarter: 2018Q2

REPORT INFORMATION
  Report Type: Report from Study
  Country: US (occurrence: US)
  Receive Date: 20171129
  Receipt Date: 20180628
  Transmission Date: 20180711
  Serious: Yes (Other)
  Sender: FDA-Public Use
  Company Number: PHEH2017US038455

PATIENT
  Age: 47 Year
  Sex: Female
  Weight: 57.14 kg

DRUGS (1)
  1. GILENYA [Suspect]
     Active Substance: FINGOLIMOD HYDROCHLORIDE
     Indication: MULTIPLE SCLEROSIS
     Dosage: 0.5 MG, QD
     Route: 048
     Dates: start: 20170820

REACTIONS (8)
  - Haemorrhage urinary tract [Unknown]
  - Pain [Unknown]
  - Urinary tract infection [Unknown]
  - Dysuria [Unknown]
  - Memory impairment [Not Recovered/Not Resolved]
  - Skin depigmentation [Unknown]
  - Hypoaesthesia [Unknown]
  - Migraine [Not Recovered/Not Resolved]

NARRATIVE: CASE EVENT DATE: 20180108
